FAERS Safety Report 23544619 (Version 1)
Quarter: 2024Q1

REPORT INFORMATION
  Report Type: Spontaneous
  Country: US (occurrence: US)
  Receive Date: 20240220
  Receipt Date: 20240220
  Transmission Date: 20240409
  Serious: No
  Sender: FDA-Public Use
  Company Number: US-PFIZER INC-202400042696

PATIENT
  Age: 68 Year
  Sex: Female
  Weight: 52.16 kg

DRUGS (2)
  1. PAXLOVID [Suspect]
     Active Substance: NIRMATRELVIR\RITONAVIR
     Indication: COVID-19 treatment
     Dosage: UNK
     Dates: start: 20240108, end: 20240112
  2. TRAZODONE [Concomitant]
     Active Substance: TRAZODONE HYDROCHLORIDE
     Dosage: UNK

REACTIONS (4)
  - Therapeutic response unexpected [Unknown]
  - COVID-19 [Unknown]
  - Disease recurrence [Unknown]
  - Illness [Unknown]

NARRATIVE: CASE EVENT DATE: 20240101
